FAERS Safety Report 6145861-3 (Version None)
Quarter: 2009Q2

REPORT INFORMATION
  Report Type: 
  Country: None (occurrence: None)
  Receive Date: 20090403
  Receipt Date: 20090324
  Transmission Date: 20091009
  Serious: Yes (Hospitalization)
  Sender: FDA-Public Use
  Company Number: 2009-193840-NL

PATIENT
  Age: 55 Year
  Sex: Male

DRUGS (12)
  1. DEXAMETHASONE 4MG TAB [Suspect]
     Indication: PROSTATE CANCER
     Dosage: DF
     Dates: start: 20090220
  2. DASATINIB OR PLACEBO [Suspect]
     Indication: PROSTATE CANCER
     Dosage: 100 MG QD; ORAL
     Route: 048
     Dates: start: 20090220
  3. DOCETAXEL [Suspect]
     Indication: PROSTATE CANCER
     Dosage: NI; INTRAVENOUS (NOS)
     Route: 042
  4. PREDNISONE [Suspect]
     Indication: PROSTATE CANCER
     Dates: start: 20090220
  5. FLUTICASONE PROPIONATE W/SALMETEROL XINAFOATE [Concomitant]
  6. CROMOLYN SODIUM [Concomitant]
  7. PERINDOPRIL ERBUMINE [Concomitant]
  8. TRAMADOL HYDROCHLORIDE [Concomitant]
  9. NULYTELY [Concomitant]
  10. PARACETAMOL [Concomitant]
  11. TROPISETRON HYDROCHLORIDE [Concomitant]
  12. METOCLOPRAMIDE HYDROCHLORIDE [Concomitant]

REACTIONS (2)
  - DIARRHOEA [None]
  - NAUSEA [None]
